FAERS Safety Report 7251101-4 (Version None)
Quarter: 2011Q1

REPORT INFORMATION
  Report Type: 
  Country: None (occurrence: None)
  Receive Date: 20110128
  Receipt Date: 20110120
  Transmission Date: 20110831
  Serious: Yes (Other)
  Sender: FDA-Public Use
  Company Number: GB-TEVA-264727ISR

PATIENT
  Age: 3 Week
  Sex: Male

DRUGS (3)
  1. FERROUS SULFATE TAB [Suspect]
     Route: 064
  2. ACETAMINOPHEN [Suspect]
     Route: 064
  3. BECLOMETHASONE DIPROPIONATE [Suspect]
     Route: 064

REACTIONS (4)
  - ABDOMINAL PAIN [None]
  - DRUG EXPOSURE DURING PREGNANCY [None]
  - GASTROINTESTINAL INFLAMMATION [None]
  - CONSTIPATION [None]
